FAERS Safety Report 5507495-0 (Version None)
Quarter: 2007Q4

REPORT INFORMATION
  Report Type: 
  Country: None (occurrence: None)
  Receive Date: 20071106
  Receipt Date: 20071029
  Transmission Date: 20080405
  Serious: Yes (Death, Other)
  Sender: FDA-Public Use
  Company Number: GB-AVENTIS-200720092GDDC

PATIENT
  Age: 81 Year

DRUGS (3)
  1. GLYBURIDE [Suspect]
     Route: 048
  2. NIFEDIPINE [Suspect]
     Route: 048
  3. ATENOLOL [Suspect]
     Route: 048

REACTIONS (3)
  - CARDIAC ARREST [None]
  - DEATH [None]
  - RESPIRATORY ARREST [None]
